FAERS Safety Report 7305825-0 (Version None)
Quarter: 2011Q1

REPORT INFORMATION
  Report Type: 
  Country: None (occurrence: None)
  Receive Date: 20110210
  Receipt Date: 20110127
  Transmission Date: 20110831
  Serious: Yes (Hospitalization, Other)
  Sender: FDA-Public Use
  Company Number: 2011AT000053

PATIENT
  Age: 81 Year
  Sex: Male

DRUGS (1)
  1. PROSTAVASIN (ALPROSTADIL) [Suspect]
     Indication: PRODUCT USED FOR UNKNOWN INDICATION

REACTIONS (2)
  - URETHRAL STENOSIS [None]
  - PROSTATE CANCER [None]
